FAERS Safety Report 4541749-X (Version None)
Quarter: 2004Q4

REPORT INFORMATION
  Report Type: 
  Country: None (occurrence: None)
  Receive Date: 20041227
  Receipt Date: 20041213
  Transmission Date: 20050328
  Serious: Yes (Life-Threatening, Hospitalization)
  Sender: FDA-Public Use
  Company Number: 2002110908JP

PATIENT
  Age: 81 Year
  Sex: Male
  Weight: 40.0073 kg

DRUGS (5)
  1. EPIRUBICIN HYDROCHLORIDE (EPIRUBICIN HYDROCHLORIDE) [Suspect]
     Indication: HEPATIC NEOPLASM MALIGNANT
  2. IODINE 2 % IN ALCOHOL (ETHANOL, IODINE) [Concomitant]
  3. CHLORPHENAMINE MALEATE (CHLORPHENAMINE MALEATE) [Concomitant]
  4. NITRAZEPAM [Concomitant]
  5. GELATIN (GELATIN) [Concomitant]

REACTIONS (1)
  - INTERSTITIAL LUNG DISEASE [None]
